FAERS Safety Report 22013373 (Version 1)
Quarter: 2023Q1

REPORT INFORMATION
  Report Type: Spontaneous
  Country: FR (occurrence: FR)
  Receive Date: 20230220
  Receipt Date: 20230220
  Transmission Date: 20230418
  Serious: Yes (Death, Hospitalization, Other)
  Sender: FDA-Public Use
  Company Number: None

PATIENT
  Age: 66 Year
  Sex: Male
  Weight: 86 kg

DRUGS (2)
  1. ADCETRIS [Suspect]
     Active Substance: BRENTUXIMAB VEDOTIN
     Indication: Cutaneous T-cell lymphoma
     Dosage: UNK UNK, 3/WEEK
     Route: 042
     Dates: start: 20220801
  2. ARANESP [Suspect]
     Active Substance: DARBEPOETIN ALFA
     Indication: Cutaneous T-cell lymphoma
     Dosage: 500 MICROGRAM, 3/WEEK
     Route: 058
     Dates: start: 202212

REACTIONS (2)
  - Dermatitis exfoliative generalised [Fatal]
  - Eosinophilia [Fatal]

NARRATIVE: CASE EVENT DATE: 20221102
